FAERS Safety Report 10087291 (Version 1)
Quarter: 2014Q2

REPORT INFORMATION
  Report Type: Spontaneous
  Country: US (occurrence: US)
  Receive Date: 20140418
  Receipt Date: 20140418
  Transmission Date: 20141212
  Serious: Yes (Other)
  Sender: FDA-Public Use
  Company Number: US-RB-066074-14

PATIENT
  Sex: Female

DRUGS (8)
  1. SUBUTEX [Suspect]
     Indication: DRUG DEPENDENCE
     Dosage: VARIOUS DOSES (3-4 TABLETS) DAILY
     Route: 065
     Dates: start: 20070110, end: 200709
  2. SUBOXONE TABLET [Suspect]
     Indication: DRUG DEPENDENCE
     Dosage: 8 MG IN THE MORNING AND 8 MG IN THE EVENING
     Route: 064
     Dates: start: 20070110, end: 200709
  3. SUBOXONE TABLET [Suspect]
     Indication: DRUG DEPENDENCE
     Dosage: THIS IS AN EXPOSURE VIA FATHER WITH UNKNOWN DOSING DETAILS
     Route: 064
     Dates: start: 20070110
  4. DILAUDID [Suspect]
     Indication: PRODUCT USED FOR UNKNOWN INDICATION
     Dosage: DOSING DETAILS UNKNOWN
     Route: 064
     Dates: start: 20070110, end: 200703
  5. MORPHINE [Suspect]
     Indication: PRODUCT USED FOR UNKNOWN INDICATION
     Dosage: DOSING DETAILS UNKNOWN
     Route: 064
     Dates: start: 20070110, end: 200703
  6. PRENATAL VITAMIN [Concomitant]
     Indication: PRODUCT USED FOR UNKNOWN INDICATION
     Route: 064
     Dates: start: 200703, end: 200705
  7. IRON SUPPLEMENT [Concomitant]
     Indication: ANAEMIA OF PREGNANCY
     Route: 064
     Dates: start: 200703, end: 200705
  8. NICOTINE [Concomitant]
     Indication: PRODUCT USED FOR UNKNOWN INDICATION
     Dosage: 10 CIGARETTES DAILY
     Route: 064
     Dates: start: 20070110, end: 2007

REACTIONS (2)
  - Foetal exposure during pregnancy [Recovered/Resolved]
  - Premature baby [Recovered/Resolved]
